FAERS Safety Report 12806128 (Version 10)
Quarter: 2024Q3

REPORT INFORMATION
  Report Type: Spontaneous
  Country: CA (occurrence: CA)
  Receive Date: 20161004
  Receipt Date: 20240704
  Transmission Date: 20241016
  Serious: Yes (Other)
  Sender: Haleon PLC
  Company Number: CA-GLAXOSMITHKLINE-CA2016GSK084842

PATIENT
  Age: 45 Year
  Sex: Female

DRUGS (30)
  1. DICLOFENAC DIETHYLAMINE [Suspect]
     Active Substance: DICLOFENAC DIETHYLAMINE
     Indication: Product used for unknown indication
     Dosage: 75 MG
     Route: 048
  2. SULFASALAZINE [Concomitant]
     Active Substance: SULFASALAZINE
     Indication: Product used for unknown indication
  3. DICLOFENAC [Concomitant]
     Active Substance: DICLOFENAC
     Indication: Product used for unknown indication
     Dosage: 75MG
  4. COSENTYX [Suspect]
     Active Substance: SECUKINUMAB
     Indication: Ankylosing spondylitis
     Dosage: STRENGTH: 150 MG
     Route: 058
     Dates: start: 20160601, end: 20160622
  5. COSENTYX [Suspect]
     Active Substance: SECUKINUMAB
     Dosage: 150 MG, QMO
     Route: 058
  6. COSENTYX [Suspect]
     Active Substance: SECUKINUMAB
     Dosage: 150 MG
     Route: 058
  7. COSENTYX [Suspect]
     Active Substance: SECUKINUMAB
     Route: 058
  8. COSENTYX [Suspect]
     Active Substance: SECUKINUMAB
     Dosage: 150 MG, Q2W
     Route: 058
  9. COSENTYX [Suspect]
     Active Substance: SECUKINUMAB
     Dosage: 150 MG
     Route: 058
     Dates: start: 20160629
  10. COSENTYX [Suspect]
     Active Substance: SECUKINUMAB
     Dosage: 150 MG
     Route: 058
  11. COSENTYX [Suspect]
     Active Substance: SECUKINUMAB
     Route: 058
  12. COSENTYX [Suspect]
     Active Substance: SECUKINUMAB
  13. COSENTYX [Suspect]
     Active Substance: SECUKINUMAB
     Dosage: STRENGTH: 150 MG,
  14. COSENTYX [Suspect]
     Active Substance: SECUKINUMAB
     Dosage: 150 MG
     Route: 058
  15. COSENTYX [Suspect]
     Active Substance: SECUKINUMAB
     Dosage: 150 MG
     Route: 058
  16. COSENTYX [Suspect]
     Active Substance: SECUKINUMAB
     Dosage: 150MG
     Route: 058
  17. COSENTYX [Suspect]
     Active Substance: SECUKINUMAB
     Route: 058
  18. OTEZLA [Concomitant]
     Active Substance: APREMILAST
     Indication: Product used for unknown indication
     Dosage: 30 MG
     Dates: start: 20160101
  19. PREDNISONE [Concomitant]
     Active Substance: PREDNISONE
     Indication: Product used for unknown indication
     Dosage: 10 MG
     Route: 065
     Dates: start: 20120101
  20. VITAMIN C [Concomitant]
     Active Substance: ASCORBIC ACID
     Indication: Product used for unknown indication
  21. INDOMETHACIN [Concomitant]
     Active Substance: INDOMETHACIN
     Indication: Product used for unknown indication
  22. DILAUDID [Concomitant]
     Active Substance: HYDROMORPHONE HYDROCHLORIDE
     Indication: Product used for unknown indication
     Dosage: 4MG
     Dates: start: 20091001
  23. NAPROXEN [Concomitant]
     Active Substance: NAPROXEN
     Indication: Product used for unknown indication
  24. IBUPROFEN [Concomitant]
     Active Substance: IBUPROFEN
     Indication: Product used for unknown indication
  25. SULINDAC [Concomitant]
     Active Substance: SULINDAC
     Indication: Product used for unknown indication
     Dosage: 150 MG
  26. FERROUS FUMARATE [Concomitant]
     Active Substance: FERROUS FUMARATE
     Indication: Product used for unknown indication
  27. CLINORIL [Concomitant]
     Active Substance: SULINDAC
     Indication: Product used for unknown indication
  28. OMEPRAZOLE [Concomitant]
     Active Substance: OMEPRAZOLE
     Indication: Product used for unknown indication
     Dates: start: 20150101
  29. HYDROMORPHONE [Concomitant]
     Active Substance: HYDROMORPHONE
     Indication: Product used for unknown indication
     Dosage: 12 MG
     Dates: start: 20091001
  30. COSENTYX [Suspect]
     Active Substance: SECUKINUMAB
     Indication: Ankylosing spondylitis
     Dosage: 150MG/ML

REACTIONS (10)
  - Melaena [Unknown]
  - Ankylosing spondylitis [Not Recovered/Not Resolved]
  - Nasopharyngitis [Unknown]
  - Injection site swelling [Unknown]
  - Drug intolerance [Unknown]
  - Illness [Unknown]
  - Haemoglobin decreased [Unknown]
  - Drug ineffective [Unknown]
  - Off label use [Unknown]
  - Alopecia [Unknown]

NARRATIVE: CASE EVENT DATE: 20160601
